FAERS Safety Report 5460691-3 (Version None)
Quarter: 2007Q3

REPORT INFORMATION
  Report Type: 
  Country: None (occurrence: None)
  Receive Date: 20070919
  Receipt Date: 20070911
  Transmission Date: 20080115
  Serious: Yes (Other)
  Sender: FDA-Public Use
  Company Number: ES-ABBOTT-07P-144-0416708-00

PATIENT
  Age: 36 Year
  Sex: Female

DRUGS (10)
  1. REMIFENTANIL [Suspect]
     Indication: PAIN
     Route: 042
  2. REMIFENTANIL [Suspect]
  3. PARACETAMOL [Concomitant]
     Indication: PAIN
  4. MIDAZOLAM HCL [Concomitant]
     Indication: ANALGESIA
     Route: 042
  5. FENTANYL [Concomitant]
     Indication: ANALGESIA
     Route: 042
  6. ROPIVACAINE [Concomitant]
     Indication: PAIN
     Dosage: 0.375% 2 ML/H WITH BOLUSES OF 2 ML
     Route: 008
  7. GABAPENTIN [Concomitant]
     Indication: PAIN
     Route: 048
  8. AMITRIPTYLINE HCL [Concomitant]
     Indication: PAIN
     Route: 048
  9. CLONAZEPAM [Concomitant]
     Indication: PAIN
  10. TRAMADOL HCL [Concomitant]
     Indication: PAIN
     Route: 048

REACTIONS (2)
  - DRUG INEFFECTIVE [None]
  - SEDATION [None]
